FAERS Safety Report 19593561 (Version 3)
Quarter: 2021Q3

REPORT INFORMATION
  Report Type: Report from Study
  Country: US (occurrence: US)
  Receive Date: 20210722
  Receipt Date: 20210820
  Transmission Date: 20211014
  Serious: Yes (Other)
  Sender: FDA-Public Use
  Company Number: US-JNJFOC-20210526212

PATIENT
  Age: 79 Year
  Sex: Male
  Weight: 80.81 kg

DRUGS (21)
  1. BUMETANIDE. [Concomitant]
     Active Substance: BUMETANIDE
     Route: 048
  2. OXYGEN. [Concomitant]
     Active Substance: OXYGEN
  3. MACITENTAN [Suspect]
     Active Substance: MACITENTAN
     Indication: PULMONARY ARTERIAL HYPERTENSION
     Route: 048
     Dates: start: 20181129
  4. OMEPRAZOLE. [Concomitant]
     Active Substance: OMEPRAZOLE
     Dosage: 20 MG CAPSULE DELAYED RELEASE
  5. SOTALOL. [Concomitant]
     Active Substance: SOTALOL
     Dosage: 0.5/HALF TABLET BY MOUTH TWICE A DAY
     Route: 048
  6. WARFARIN [Concomitant]
     Active Substance: WARFARIN
     Dosage: 0.5 TO 1 TABLET BY MOUTH AS DIRECTED
     Route: 048
  7. ATORVASTATIN [Concomitant]
     Active Substance: ATORVASTATIN
     Dosage: 1 TABLET BY MOUTH EVERY OTHER DAY
     Route: 048
  8. PROSTACYCLIN [Concomitant]
     Active Substance: EPOPROSTENOL
     Dosage: NEBULIZED
  9. MACITENTAN [Suspect]
     Active Substance: MACITENTAN
     Route: 048
     Dates: start: 20200910
  10. ALLOPURINOL. [Concomitant]
     Active Substance: ALLOPURINOL
     Dosage: 1 TABLET BY MOUTH DAILY
     Route: 048
  11. SPIRONOLACTONE. [Concomitant]
     Active Substance: SPIRONOLACTONE
     Dosage: TEMPORARY NOT TAKING
     Route: 048
  12. SELEXIPAG [Suspect]
     Active Substance: SELEXIPAG
     Indication: PULMONARY ARTERIAL HYPERTENSION
     Route: 048
     Dates: start: 201904
  13. LEVOTHYROXINE. [Concomitant]
     Active Substance: LEVOTHYROXINE
     Route: 048
  14. VENTOLIN HFA [Concomitant]
     Active Substance: ALBUTEROL SULFATE
     Dosage: 90 MC/ACTUATION AEROSOL INHALER?2 PUFF INHALE EVERY 6 HOURS
  15. ADEMPAS [Suspect]
     Active Substance: RIOCIGUAT
     Indication: PRODUCT USED FOR UNKNOWN INDICATION
     Route: 048
  16. UMECLIDINIUM BROMIDE [Concomitant]
     Active Substance: UMECLIDINIUM BROMIDE
     Dosage: 62.5 MCG/ACTUATION POWDER FOR INHALATION, INHALE 1 PUFF DAILY
  17. SELEXIPAG [Suspect]
     Active Substance: SELEXIPAG
     Route: 048
     Dates: start: 20200910, end: 20210401
  18. SILDENAFIL CITRATE. [Suspect]
     Active Substance: SILDENAFIL CITRATE
     Indication: PULMONARY ARTERIAL HYPERTENSION
     Route: 065
  19. ALLOPURINOL. [Concomitant]
     Active Substance: ALLOPURINOL
     Dosage: 1 TABLET BY MOUTH DAILY
     Route: 048
  20. BUMETANIDE. [Concomitant]
     Active Substance: BUMETANIDE
     Dosage: 0.5/HALF TABLET BY MOUTH
     Route: 048
  21. CALCIUM 500+D [Concomitant]
     Active Substance: CALCIUM\VITAMIN D
     Dosage: 500 MG (1250 MG)?400 UNIT TABLET

REACTIONS (9)
  - Asthenia [Unknown]
  - Muscular weakness [Recovering/Resolving]
  - Muscle spasms [Unknown]
  - Dyspnoea [Unknown]
  - Heart rate increased [Recovered/Resolved]
  - Hypotension [Recovering/Resolving]
  - Arthritis [Unknown]
  - Dizziness [Unknown]
  - Oedema peripheral [Unknown]
